FAERS Safety Report 5691060-9 (Version None)
Quarter: 2008Q2

REPORT INFORMATION
  Report Type: 
  Country: None (occurrence: None)
  Receive Date: 20080401
  Receipt Date: 20080320
  Transmission Date: 20081010
  Serious: Yes (Other)
  Sender: FDA-Public Use
  Company Number: US-PFIZER INC-2008022000

PATIENT
  Sex: Female
  Weight: 70.3 kg

DRUGS (1)
  1. CHANTIX [Suspect]
     Indication: SMOKING CESSATION THERAPY

REACTIONS (10)
  - ANGER [None]
  - CRYING [None]
  - DRUG ADMINISTRATION ERROR [None]
  - EMOTIONAL DISORDER [None]
  - FEELING ABNORMAL [None]
  - MENTAL IMPAIRMENT [None]
  - MOOD SWINGS [None]
  - SCREAMING [None]
  - THINKING ABNORMAL [None]
  - UNEVALUABLE EVENT [None]
